FAERS Safety Report 20101314 (Version 1)
Quarter: 2021Q4

REPORT INFORMATION
  Report Type: Spontaneous
  Country: US (occurrence: US)
  Receive Date: 20211123
  Receipt Date: 20211123
  Transmission Date: 20220303
  Serious: No
  Sender: FDA-Public Use
  Company Number: US-009507513-2111USA006874

PATIENT
  Age: 44 Year
  Sex: Female

DRUGS (1)
  1. TEMODAR [Suspect]
     Active Substance: TEMOZOLOMIDE
     Indication: Pineal neoplasm
     Dosage: 12 CYCLES OF 5-DAY
     Route: 048

REACTIONS (3)
  - Fatigue [Unknown]
  - Alopecia [Unknown]
  - Off label use [Unknown]
